FAERS Safety Report 10427217 (Version 1)
Quarter: 2014Q3

REPORT INFORMATION
  Report Type: Spontaneous
  Country: US (occurrence: None)
  Receive Date: 20140902
  Receipt Date: 20140902
  Transmission Date: 20150326
  Serious: Yes (Life-Threatening, Hospitalization, Disabling, Other)
  Sender: FDA-Public Use
  Company Number: None

PATIENT
  Age: 62 Year
  Sex: Male
  Weight: 99.79 kg

DRUGS (2)
  1. ALPROSTADIL. [Suspect]
     Active Substance: ALPROSTADIL
     Indication: ERECTILE DYSFUNCTION
     Dosage: 20 UNITS?3X WEEK?INJECTED INTO PENIS
     Dates: start: 20131011, end: 20131026
  2. TRIMIX [Suspect]
     Active Substance: ALPROSTADIL\PAPAVERINE\PHENTOLAMINE
     Indication: ERECTILE DYSFUNCTION
     Dosage: 20 UNITS ?3 X PER WEEK ?INJECTION INTO PENIS
     Dates: start: 20131011, end: 20131026

REACTIONS (7)
  - Visual field defect [None]
  - Brain injury [None]
  - Cognitive disorder [None]
  - Aphasia [None]
  - Activities of daily living impaired [None]
  - Brain stem stroke [None]
  - Abasia [None]

NARRATIVE: CASE EVENT DATE: 20131105
